FAERS Safety Report 8829306 (Version 2)
Quarter: 2015Q2

REPORT INFORMATION
  Report Type: Report from Study
  Country: US (occurrence: US)
  Receive Date: 20121008
  Receipt Date: 20150410
  Transmission Date: 20150821
  Serious: Yes (Other)
  Sender: FDA-Public Use
  Company Number: US-ROCHE-1135786

PATIENT
  Age: 59 Year
  Sex: Male
  Weight: 80.36 kg

DRUGS (11)
  1. TYLENOL [Concomitant]
     Active Substance: ACETAMINOPHEN
     Route: 065
  2. LEUKERAN [Concomitant]
     Active Substance: CHLORAMBUCIL
     Route: 065
  3. RITUXAN [Suspect]
     Active Substance: RITUXIMAB
     Dosage: THERAPY DATES: 19/AUG/1998, 09/DEC/1998
     Route: 042
  4. GLYBURIDE. [Concomitant]
     Active Substance: GLYBURIDE
     Route: 065
  5. RITUXAN [Suspect]
     Active Substance: RITUXIMAB
     Indication: LYMPHOMA
     Dosage: THERAPY DATES: 15/SEP/1998, 07/OCT/1998 AND 28/OCT/1998, 23/DEC/1998
     Route: 042
  6. RITUXAN [Suspect]
     Active Substance: RITUXIMAB
     Dosage: THERAPY DATES: 30/DEC/1998, 13/JAN/1999, 27/JAN/1999, 10/FEB/1999, 19/MAY/1999, 11/JUNE/1999, 28/JUN
     Route: 042
  7. ZOFRAN [Concomitant]
     Active Substance: ONDANSETRON HYDROCHLORIDE
     Route: 048
  8. RITUXAN [Suspect]
     Active Substance: RITUXIMAB
     Indication: CHRONIC LYMPHOCYTIC LEUKAEMIA
     Dosage: THERAPY DATES: 15/JUL/1998, 22/JUL/1998, 29/JUL/1998, 05/AUG/1998
     Route: 042
     Dates: start: 19980709
  9. CODEINE [Concomitant]
     Active Substance: CODEINE
  10. BENADRYL [Concomitant]
     Active Substance: DIPHENHYDRAMINE HYDROCHLORIDE
     Route: 042
  11. LEUKERAN [Concomitant]
     Active Substance: CHLORAMBUCIL
     Route: 065

REACTIONS (3)
  - Chronic lymphocytic leukaemia recurrent [Unknown]
  - Nausea [Unknown]
  - Oedema peripheral [Unknown]

NARRATIVE: CASE EVENT DATE: 19990611
